FAERS Safety Report 15803748 (Version 1)
Quarter: 2019Q1

REPORT INFORMATION
  Report Type: Spontaneous
  Country: US (occurrence: US)
  Receive Date: 20190109
  Receipt Date: 20190109
  Transmission Date: 20190417
  Serious: Yes (Disabling, Other)
  Sender: FDA-Public Use
  Company Number: US-LEITERS-2061024

PATIENT

DRUGS (1)
  1. CEFUROXIME 10 MG/ML IN 0.9% SODIUM CHLORIDE, INTRAVITREAL INJECTION, 1 [Suspect]
     Active Substance: CEFUROXIME SODIUM
     Route: 047
     Dates: start: 20181211, end: 20181211

REACTIONS (1)
  - Blindness [Unknown]
